FAERS Safety Report 24861781 (Version 8)
Quarter: 2025Q3

REPORT INFORMATION
  Report Type: Report from Study
  Country: US (occurrence: US)
  Receive Date: 20250120
  Receipt Date: 20250708
  Transmission Date: 20251021
  Serious: Yes (Hospitalization, Other)
  Sender: SUNOVION
  Company Number: US-SMPA-2025SPA000484

PATIENT

DRUGS (3)
  1. ORGOVYX [Suspect]
     Active Substance: RELUGOLIX
     Indication: Prostate cancer
     Dosage: 120 MG, QD
     Route: 048
     Dates: start: 20220105
  2. XTANDI [Suspect]
     Active Substance: ENZALUTAMIDE
     Route: 065
  3. GABAPENTIN [Suspect]
     Active Substance: GABAPENTIN
     Route: 065

REACTIONS (14)
  - Pneumonia [Unknown]
  - Hip fracture [Recovered/Resolved]
  - Fall [Unknown]
  - Blood pressure decreased [Unknown]
  - Vertigo positional [Recovered/Resolved]
  - Dementia Alzheimer^s type [Unknown]
  - Feeling abnormal [Unknown]
  - Food poisoning [Unknown]
  - Sinusitis [Unknown]
  - Infection [Unknown]
  - Flushing [Unknown]
  - Musculoskeletal discomfort [Recovered/Resolved]
  - Product dose omission issue [Unknown]
  - Incorrect dose administered [Unknown]
